FAERS Safety Report 4716768-0 (Version None)
Quarter: 2005Q3

REPORT INFORMATION
  Report Type: 
  Country: None (occurrence: None)
  Receive Date: 20050714
  Receipt Date: 20050701
  Transmission Date: 20060218
  Serious: Yes (Other)
  Sender: FDA-Public Use
  Company Number: 2005075412

PATIENT
  Age: 73 Year
  Sex: Female
  Weight: 53.978 kg

DRUGS (1)
  1. BEXTRA [Suspect]
     Indication: RHEUMATOID ARTHRITIS
     Dosage: 20 MG (10 MG, 2 IN 1 D), ORAL
     Route: 048
     Dates: start: 20040830, end: 20050101

REACTIONS (3)
  - BLINDNESS [None]
  - PHOTOPSIA [None]
  - THROMBOSIS [None]
